FAERS Safety Report 11230650 (Version 1)
Quarter: 2015Q2

REPORT INFORMATION
  Report Type: Spontaneous
  Country: US (occurrence: None)
  Receive Date: 20150630
  Receipt Date: 20150630
  Transmission Date: 20150821
  Serious: Yes (Hospitalization)
  Sender: FDA-Public Use
  Company Number: None

PATIENT
  Age: 51 Year
  Sex: Male
  Weight: 140.62 kg

DRUGS (6)
  1. EFFIENT [Suspect]
     Active Substance: PRASUGREL HYDROCHLORIDE
     Indication: CARDIOVASCULAR DISORDER
     Dosage: 1
     Route: 048
     Dates: start: 20141007, end: 20141012
  2. LISINOPRIL. [Concomitant]
     Active Substance: LISINOPRIL
  3. EFFIENT [Suspect]
     Active Substance: PRASUGREL HYDROCHLORIDE
     Indication: VASCULAR STENT INSERTION
     Dosage: 1
     Route: 048
     Dates: start: 20141007, end: 20141012
  4. ATORVASTATIN [Concomitant]
     Active Substance: ATORVASTATIN
  5. MEN^S 1 A DAY VITAMIN [Concomitant]
  6. LOW DOSE ASPIRIN [Concomitant]
     Active Substance: ASPIRIN

REACTIONS (3)
  - Rash generalised [None]
  - Hypersensitivity [None]
  - Drug eruption [None]

NARRATIVE: CASE EVENT DATE: 20141012
